FAERS Safety Report 25884771 (Version 2)
Quarter: 2025Q4

REPORT INFORMATION
  Report Type: Spontaneous
  Country: US (occurrence: US)
  Receive Date: 20251006
  Receipt Date: 20251014
  Transmission Date: 20260117
  Serious: No
  Sender: PFIZER
  Company Number: US-PFIZER INC-PV202500115369

PATIENT

DRUGS (1)
  1. THROMBIN-JMI [Suspect]
     Active Substance: THROMBIN
     Indication: Haemostasis
     Dosage: UNK
     Route: 061

REACTIONS (3)
  - Wrong technique in device usage process [Unknown]
  - Product label confusion [Unknown]
  - Device difficult to use [Unknown]
